FAERS Safety Report 8592116-3 (Version None)
Quarter: 2012Q3

REPORT INFORMATION
  Report Type: 
  Country: None (occurrence: None)
  Receive Date: 20120814
  Receipt Date: 20120809
  Transmission Date: 20120928
  Serious: Yes (Other)
  Sender: FDA-Public Use
  Company Number: US-AMGEN-USASP2011040001

PATIENT
  Age: 59 Year
  Sex: Female
  Weight: 84.807 kg

DRUGS (6)
  1. RECLAST [Concomitant]
     Indication: OSTEOPOROSIS
     Dosage: 5 MG, Q12MO
     Route: 042
     Dates: start: 20090909, end: 20101116
  2. ENBREL [Suspect]
     Dosage: 50 MG, QWK
     Dates: start: 20090116
  3. ENBREL [Suspect]
     Indication: PSORIASIS
     Dosage: 50 MG, QWK
     Route: 058
     Dates: start: 20120807
  4. ENBREL [Suspect]
     Dosage: 50 MG, QWK
     Route: 058
     Dates: start: 20090204, end: 20110810
  5. NEXIUM [Concomitant]
     Indication: GASTROOESOPHAGEAL REFLUX DISEASE
     Dosage: 40 MG, QD
     Route: 048
     Dates: start: 20081022
  6. METHOTREXATE [Concomitant]
     Indication: PSORIATIC ARTHROPATHY
     Dosage: 10 MG, QWK
     Route: 048
     Dates: start: 20110615

REACTIONS (7)
  - PSORIATIC ARTHROPATHY [None]
  - ABDOMINAL DISTENSION [None]
  - GASTROOESOPHAGEAL REFLUX DISEASE [None]
  - RECTAL HAEMORRHAGE [None]
  - EARLY SATIETY [None]
  - HYPERLIPIDAEMIA [None]
  - DIVERTICULITIS [None]
